FAERS Safety Report 6520550-1 (Version None)
Quarter: 2009Q4

REPORT INFORMATION
  Report Type: 
  Country: None (occurrence: None)
  Receive Date: 20091229
  Receipt Date: 20091224
  Transmission Date: 20100525
  Serious: Yes (Death, Hospitalization, Other)
  Sender: FDA-Public Use
  Company Number: JP-BAYER-200914592BYL

PATIENT
  Age: 74 Year
  Sex: Male
  Weight: 69 kg

DRUGS (15)
  1. NEXAVAR [Suspect]
     Indication: HEPATIC NEOPLASM MALIGNANT
     Dosage: TOTAL DAILY DOSE: 800 MG  UNIT DOSE: 200 MG
     Route: 048
     Dates: start: 20091113, end: 20091119
  2. LASIX [Concomitant]
     Route: 042
     Dates: start: 20091120, end: 20091121
  3. LASIX [Concomitant]
     Dosage: UNIT DOSE: 20 MG
     Route: 048
     Dates: end: 20091119
  4. SLOW-K [Concomitant]
     Dosage: UNIT DOSE: 600 MG
     Route: 048
     Dates: end: 20091119
  5. ALDACTONE [Concomitant]
     Dosage: UNIT DOSE: 25 MG
     Route: 048
     Dates: end: 20091119
  6. URSO 250 [Concomitant]
     Dosage: UNIT DOSE: 100 MG
     Route: 048
     Dates: end: 20091121
  7. PARIET [Concomitant]
     Dosage: UNIT DOSE: 10 MG
     Route: 048
     Dates: end: 20091121
  8. LOXONIN [Concomitant]
     Dosage: UNIT DOSE: 60 MG
     Route: 048
     Dates: end: 20091121
  9. MUCOSTA [Concomitant]
     Dosage: UNIT DOSE: 100 MG
     Route: 048
     Dates: end: 20091121
  10. NEOPHAGEN [Concomitant]
     Dosage: SINCE BEFORE ADMINISTRATION
     Route: 042
     Dates: end: 20091121
  11. GLUTATHIONE [Concomitant]
     Dosage: SINCE BEFORE ADMINISTRATION
     Route: 042
     Dates: end: 20091121
  12. ADELAVIN-NO.9 [Concomitant]
     Dosage: UNIT DOSE: 2 ML
     Route: 042
     Dates: end: 20091121
  13. OMEPRAL [Concomitant]
     Route: 042
     Dates: start: 20091116, end: 20091121
  14. AMINOLEBAN [Concomitant]
     Dosage: UNIT DOSE: 500 ML
     Route: 042
     Dates: start: 20091116, end: 20091121
  15. SOLDACTONE [Concomitant]
     Route: 042
     Dates: start: 20091120, end: 20091121

REACTIONS (5)
  - DISEASE PROGRESSION [None]
  - HAEMATEMESIS [None]
  - HEPATIC ENCEPHALOPATHY [None]
  - HEPATIC NEOPLASM MALIGNANT [None]
  - PAIN [None]
